FAERS Safety Report 5754581-6 (Version None)
Quarter: 2008Q2

REPORT INFORMATION
  Report Type: 
  Country: None (occurrence: None)
  Receive Date: 20080530
  Receipt Date: 20080519
  Transmission Date: 20081010
  Serious: Yes (Other)
  Sender: FDA-Public Use
  Company Number: KR-PFIZER INC-2008043347

PATIENT
  Sex: Male

DRUGS (2)
  1. LYRICA [Suspect]
     Route: 048
  2. NEURONTIN [Suspect]
     Route: 048

REACTIONS (2)
  - MUSCULOSKELETAL STIFFNESS [None]
  - SURGERY [None]
